FAERS Safety Report 8726554 (Version 3)
Quarter: 2012Q4

REPORT INFORMATION
  Report Type: 
  Country: US (occurrence: US)
  Receive Date: 20120816
  Receipt Date: 20120910
  Transmission Date: 20130627
  Serious: Yes (Hospitalization, Other)
  Sender: FDA-Public Use
  Company Number: PHEH2012US013814

PATIENT
  Age: 31 None
  Sex: Male
  Weight: 99.77 kg

DRUGS (12)
  1. GILENYA [Suspect]
     Indication: RELAPSING-REMITTING MULTIPLE SCLEROSIS
     Dosage: 0.5 mg, QD
     Route: 048
     Dates: start: 20120709, end: 20120815
  2. METFORMIN [Concomitant]
     Dosage: 850 mg, BID
  3. LISINOPRIL [Concomitant]
     Dosage: 20 mg, daily
  4. BACLOFEN [Concomitant]
  5. CYMBALTA [Concomitant]
  6. GABAPENTIN [Concomitant]
  7. FLEXERIL [Concomitant]
  8. ASPIRIN [Concomitant]
     Dosage: 81 mg, daily
  9. IMDUR [Concomitant]
     Dosage: 30 mg, daily
  10. PLAVIX [Concomitant]
     Dosage: 75 mg, daily
  11. NEURONTIN [Concomitant]
     Dosage: 600 mg, UNK
  12. TOPROL XL [Concomitant]

REACTIONS (14)
  - Acute myocardial infarction [Recovering/Resolving]
  - Blood potassium decreased [Unknown]
  - Enzyme level increased [Unknown]
  - Angina pectoris [Unknown]
  - Left ventricular hypertrophy [Recovering/Resolving]
  - Chest pain [Unknown]
  - Troponin increased [Recovered/Resolved]
  - Nausea [Unknown]
  - Vomiting [Unknown]
  - Hyperhidrosis [Unknown]
  - Chest discomfort [Recovered/Resolved]
  - Neck pain [Unknown]
  - Muscle spasms [Unknown]
  - Headache [Unknown]
